FAERS Safety Report 14738357 (Version 1)
Quarter: 2018Q2

REPORT INFORMATION
  Report Type: Spontaneous
  Country: US (occurrence: US)
  Receive Date: 20180404
  Receipt Date: 20180404
  Transmission Date: 20180711
  Serious: Yes (Other)
  Sender: FDA-Public Use
  Company Number: None

PATIENT
  Age: 95 Year
  Sex: Female
  Weight: 51.71 kg

DRUGS (1)
  1. EYLEA [Suspect]
     Active Substance: AFLIBERCEPT
     Indication: MACULAR DEGENERATION
     Dosage: ?          OTHER DOSE:0.05 CC;OTHER ROUTE:INTRAVITREAL?
     Dates: start: 20180313

REACTIONS (3)
  - Staphylococcal infection [None]
  - Culture positive [None]
  - Endophthalmitis [None]

NARRATIVE: CASE EVENT DATE: 20180313
